FAERS Safety Report 9746309 (Version 1)
Quarter: 2013Q4

REPORT INFORMATION
  Report Type: Spontaneous
  Country: FR (occurrence: FR)
  Receive Date: 20131211
  Receipt Date: 20131211
  Transmission Date: 20140711
  Serious: Yes (Hospitalization)
  Sender: FDA-Public Use
  Company Number: FR-TEVA-449005ISR

PATIENT
  Age: 26 Year
  Sex: Male

DRUGS (2)
  1. BUPRENORPHINE [Suspect]
     Indication: DRUG DEPENDENCE
     Dosage: 8 MILLIGRAM DAILY;
     Route: 040
  2. BUPRENORPHINE [Suspect]
     Route: 065

REACTIONS (4)
  - Injection site ischaemia [Recovering/Resolving]
  - Urinary retention [Recovering/Resolving]
  - Enterobacter infection [Recovering/Resolving]
  - Drug abuse [Recovering/Resolving]
